FAERS Safety Report 6612152-3 (Version None)
Quarter: 2010Q1

REPORT INFORMATION
  Report Type: 
  Country: None (occurrence: None)
  Receive Date: 20100302
  Receipt Date: 20100302
  Transmission Date: 20100710
  Serious: No
  Sender: FDA-Public Use
  Company Number: None

PATIENT
  Age: 53 Year
  Sex: Female
  Weight: 60 kg

DRUGS (1)
  1. LEVOFLOXACIN [Suspect]
     Indication: DIARRHOEA
     Dosage: 500 MG ONCE PER DAY PO
     Route: 048
     Dates: start: 20100208, end: 20100210

REACTIONS (7)
  - HYPOAESTHESIA [None]
  - PAIN IN EXTREMITY [None]
  - PARAESTHESIA [None]
  - SWELLING [None]
  - TENDON DISORDER [None]
  - TENDON PAIN [None]
  - VISUAL ACUITY REDUCED [None]
